FAERS Safety Report 5788627-6 (Version None)
Quarter: 2008Q2

REPORT INFORMATION
  Report Type: 
  Country: None (occurrence: None)
  Receive Date: 20080625
  Receipt Date: 20080625
  Transmission Date: 20081010
  Serious: No
  Sender: FDA-Public Use
  Company Number: None

PATIENT
  Sex: Female
  Weight: 119.296 kg

DRUGS (10)
  1. METFORMIN HCL [Suspect]
     Indication: TYPE 2 DIABETES MELLITUS
     Dosage: 1 TAB TID PO
     Route: 048
     Dates: start: 20010101, end: 20030101
  2. GLIPIZIDE [Suspect]
     Indication: TYPE 2 DIABETES MELLITUS
     Dosage: 1 TAB BID PO
     Route: 048
     Dates: start: 20010101, end: 20030101
  3. QUINAPRIL [Suspect]
     Indication: CORONARY ARTERY DISEASE
     Dosage: 1 TAB BID PO
     Route: 048
     Dates: start: 20010101, end: 20030101
  4. QUINAPRIL [Suspect]
     Indication: HYPERTENSION
     Dosage: 1 TAB BID PO
     Route: 048
     Dates: start: 20010101, end: 20030101
  5. METOPROLOL 100MG [Suspect]
     Indication: CORONARY ARTERY DISEASE
     Dosage: 1 TAB BID PO
     Route: 048
     Dates: start: 20010101, end: 20030101
  6. METOPROLOL 100MG [Suspect]
     Indication: HYPERTENSION
     Dosage: 1 TAB BID PO
     Route: 048
     Dates: start: 20010101, end: 20030101
  7. FUROSEMIDE [Suspect]
     Indication: CORONARY ARTERY DISEASE
     Dosage: 1 TAB EVERY MORNING PO
     Route: 048
     Dates: start: 20010101, end: 20030101
  8. FUROSEMIDE [Suspect]
     Indication: HYPERTENSION
     Dosage: 1 TAB EVERY MORNING PO
     Route: 048
     Dates: start: 20010101, end: 20030101
  9. SIMVASTATIN [Suspect]
     Indication: HYPERLIPIDAEMIA
     Dosage: 1 TAB EVERY EVENING PO
     Route: 048
     Dates: start: 20010101, end: 20030101
  10. ACETAMINOPHEN W/ CODEINE [Suspect]
     Indication: OSTEOARTHRITIS
     Dosage: 1 TABLET BID PO
     Route: 048
     Dates: start: 20030101

REACTIONS (11)
  - ABDOMINAL DISTENSION [None]
  - BLOOD PRESSURE INADEQUATELY CONTROLLED [None]
  - DIABETES MELLITUS INADEQUATE CONTROL [None]
  - DIARRHOEA [None]
  - DRUG EFFECT DECREASED [None]
  - HEADACHE [None]
  - MALAISE [None]
  - MYALGIA [None]
  - NAUSEA [None]
  - PHARMACEUTICAL PRODUCT COMPLAINT [None]
  - THERAPEUTIC RESPONSE UNEXPECTED WITH DRUG SUBSTITUTION [None]
